FAERS Safety Report 9229718 (Version 1)
Quarter: 2013Q2

REPORT INFORMATION
  Report Type: Spontaneous
  Country: US (occurrence: US)
  Receive Date: 20130415
  Receipt Date: 20130415
  Transmission Date: 20140414
  Serious: No
  Sender: FDA-Public Use
  Company Number: US-BIOGENIDEC-2013BI031768

PATIENT
  Sex: Male

DRUGS (1)
  1. TYSABRI [Suspect]
     Indication: MULTIPLE SCLEROSIS
     Route: 042
     Dates: start: 20080520

REACTIONS (14)
  - Spinal pain [Unknown]
  - Diplopia [Unknown]
  - Hypoaesthesia [Unknown]
  - Nuclear magnetic resonance imaging abnormal [Unknown]
  - General symptom [Not Recovered/Not Resolved]
  - Gait disturbance [Not Recovered/Not Resolved]
  - Visual acuity reduced [Not Recovered/Not Resolved]
  - Frustration [Not Recovered/Not Resolved]
  - Blood brain barrier defect [Not Recovered/Not Resolved]
  - Irritability [Not Recovered/Not Resolved]
  - Dyspnoea [Unknown]
  - Fatigue [Not Recovered/Not Resolved]
  - Headache [Not Recovered/Not Resolved]
  - Multiple sclerosis [Not Recovered/Not Resolved]
